FAERS Safety Report 7830498-8 (Version None)
Quarter: 2011Q4

REPORT INFORMATION
  Report Type: 
  Country: None (occurrence: None)
  Receive Date: 20111021
  Receipt Date: 20111018
  Transmission Date: 20120403
  Serious: Yes (Other)
  Sender: FDA-Public Use
  Company Number: US-PFIZER INC-2011250931

PATIENT
  Sex: Male
  Weight: 90.703 kg

DRUGS (2)
  1. PROTONIX [Suspect]
     Dosage: 40 MG, 1X/DAY
     Route: 048
     Dates: end: 20111001
  2. AMANTADINE [Concomitant]
     Indication: PARKINSON'S DISEASE
     Dosage: UNK

REACTIONS (1)
  - GLUCOSE TOLERANCE IMPAIRED [None]
